FAERS Safety Report 24013164 (Version 1)
Quarter: 2024Q2

REPORT INFORMATION
  Report Type: Report from Study
  Country: US (occurrence: US)
  Receive Date: 20240626
  Receipt Date: 20240626
  Transmission Date: 20240716
  Serious: No
  Sender: FDA-Public Use
  Company Number: US-BIOVITRUM-2024-US-008241

PATIENT
  Age: 36 Year
  Sex: Male

DRUGS (1)
  1. KINERET [Suspect]
     Active Substance: ANAKINRA
     Indication: Still^s disease
     Dosage: DAILY
     Route: 058
     Dates: start: 20240518

REACTIONS (3)
  - Off label use [Not Recovered/Not Resolved]
  - Injection site erythema [Unknown]
  - Erythema [Unknown]

NARRATIVE: CASE EVENT DATE: 20240518
